FAERS Safety Report 21486202 (Version 1)
Quarter: 2022Q4

REPORT INFORMATION
  Report Type: Spontaneous
  Country: IT (occurrence: IT)
  Receive Date: 20221020
  Receipt Date: 20221020
  Transmission Date: 20230113
  Serious: Yes (Hospitalization)
  Sender: FDA-Public Use
  Company Number: IT-OTSUKA-2022_048717

PATIENT
  Age: 66 Year
  Sex: Male
  Weight: 83 kg

DRUGS (3)
  1. DACOGEN [Suspect]
     Active Substance: DECITABINE
     Indication: Acute myeloid leukaemia
     Dosage: 20 MILLIGRAM
     Route: 042
     Dates: start: 20220429
  2. VENETOCLAX [Suspect]
     Active Substance: VENETOCLAX
     Indication: Acute myeloid leukaemia
     Dosage: 50 MILLIGRAM
     Route: 048
     Dates: start: 20220429
  3. POSACONAZOLE [Concomitant]
     Active Substance: POSACONAZOLE
     Indication: Prophylaxis
     Dosage: 300 MILLIGRAM
     Route: 048
     Dates: start: 20220424

REACTIONS (8)
  - Syncope [Not Recovered/Not Resolved]
  - Syncope [Recovered/Resolved]
  - Syncope [Recovered/Resolved]
  - Hyperhidrosis [Not Recovered/Not Resolved]
  - Head injury [Unknown]
  - Nausea [Not Recovered/Not Resolved]
  - Dizziness [Not Recovered/Not Resolved]
  - Pyrexia [Not Recovered/Not Resolved]

NARRATIVE: CASE EVENT DATE: 20220101
